FAERS Safety Report 6431721-7 (Version None)
Quarter: 2009Q4

REPORT INFORMATION
  Report Type: 
  Country: None (occurrence: None)
  Receive Date: 20091103
  Receipt Date: 20091019
  Transmission Date: 20100525
  Serious: Yes (Death, Hospitalization)
  Sender: FDA-Public Use
  Company Number: 02100-JPN-07-0336

PATIENT
  Age: 61 Year
  Sex: Male
  Weight: 50 kg

DRUGS (3)
  1. PLETAL [Suspect]
     Indication: CEREBRAL INFARCTION
     Dosage: 100 MG, BID
     Route: 048
     Dates: start: 20040728, end: 20070707
  2. LIVALO (PITAVASTATIN CALCIUM) [Concomitant]
  3. LIPITOR [Concomitant]

REACTIONS (16)
  - AORTIC ANEURYSM [None]
  - BLOOD ALKALINE PHOSPHATASE INCREASED [None]
  - BLOOD LACTATE DEHYDROGENASE INCREASED [None]
  - EMPHYSEMA [None]
  - GASTRIC CANCER [None]
  - INTERSTITIAL LUNG DISEASE [None]
  - LUNG CANCER METASTATIC [None]
  - LYMPHOMA [None]
  - MALIGNANT NEOPLASM PROGRESSION [None]
  - METASTASES TO BONE [None]
  - METASTASES TO LIVER [None]
  - METASTASES TO LYMPH NODES [None]
  - PAIN [None]
  - PERIARTHRITIS [None]
  - PLEURAL EFFUSION [None]
  - PNEUMONIA [None]
